FAERS Safety Report 14803430 (Version 1)
Quarter: 2018Q2

REPORT INFORMATION
  Report Type: Spontaneous
  Country: GB (occurrence: GB)
  Receive Date: 20180425
  Receipt Date: 20180425
  Transmission Date: 20180711
  Serious: Yes (Other)
  Sender: FDA-Public Use
  Company Number: GB-TEVA-2018-GB-885729

PATIENT
  Age: 83 Year
  Sex: Female
  Weight: 62 kg

DRUGS (21)
  1. THIAMINE. [Concomitant]
     Active Substance: THIAMINE
     Dosage: 2 DOSAGE FORMS DAILY;
     Route: 065
     Dates: start: 20120822, end: 20180209
  2. BUPRENORPHINE. [Concomitant]
     Active Substance: BUPRENORPHINE
     Route: 065
     Dates: start: 20120822, end: 20180209
  3. FENTANYL. [Suspect]
     Active Substance: FENTANYL
     Route: 065
     Dates: start: 20131016
  4. COCODAMOL [Concomitant]
     Active Substance: ACETAMINOPHEN\CODEINE PHOSPHATE
     Dosage: 4 DOSAGE FORMS DAILY;
     Route: 065
     Dates: start: 20131212, end: 20180209
  5. BUTRANS [Concomitant]
     Active Substance: BUPRENORPHINE
     Route: 065
     Dates: start: 20150313, end: 20180209
  6. CASSIA [Concomitant]
     Dosage: 2 DOSAGE FORMS DAILY; AT NIGHT
     Route: 065
     Dates: start: 20130703, end: 20180209
  7. VENLAFAXINE [Concomitant]
     Active Substance: VENLAFAXINE HYDROCHLORIDE
     Dosage: 1 DOSAGE FORMS DAILY;
     Route: 065
     Dates: start: 20120822, end: 20180209
  8. ALENDRONIC ACID [Concomitant]
     Active Substance: ALENDRONIC ACID
     Dosage: TAKE FIRST THING IN THE MO...
     Route: 065
     Dates: start: 20160329, end: 20180209
  9. ZOLPIDEM [Concomitant]
     Active Substance: ZOLPIDEM\ZOLPIDEM TARTRATE
     Dosage: 1 DOSAGE FORMS DAILY; AT NIGHT
     Route: 065
     Dates: start: 20120822, end: 20180209
  10. CODEINE PHOSPHATE [Concomitant]
     Active Substance: CODEINE PHOSPHATE
     Dosage: ONE TO BE TAKEN FOUR TIMES A DAY...
     Dates: start: 20171211, end: 20180209
  11. OMEPRAZOLE. [Concomitant]
     Active Substance: OMEPRAZOLE
     Dosage: 1 DOSAGE FORMS DAILY;
     Route: 065
     Dates: start: 20150907, end: 20180209
  12. PARACETAMOL [Concomitant]
     Active Substance: ACETAMINOPHEN
     Dosage: 4 DOSAGE FORMS DAILY;
     Route: 065
     Dates: start: 20120822, end: 20180209
  13. LACTULOSE. [Concomitant]
     Active Substance: LACTULOSE
     Dosage: 30 ML DAILY;
     Route: 065
     Dates: start: 20131016, end: 20180209
  14. MEBEVERINE HYDROCHLORIDE [Concomitant]
     Active Substance: MEBEVERINE HYDROCHLORIDE
     Dosage: 2 DOSAGE FORMS DAILY;
     Route: 065
     Dates: start: 20120822, end: 20180209
  15. LEVOTHYROXINE. [Concomitant]
     Active Substance: LEVOTHYROXINE
     Dosage: 1 DOSAGE FORMS DAILY;
     Route: 065
     Dates: start: 20120822, end: 20180209
  16. LOPERAMIDE [Concomitant]
     Active Substance: LOPERAMIDE
     Dosage: TWO TO BE TAKEN IMMEDIATELY THEN ONE TO BE TAKE...
     Route: 065
     Dates: start: 20171127, end: 20180109
  17. IBUPROFEN. [Concomitant]
     Active Substance: IBUPROFEN
     Dosage: 3 DOSAGE FORMS DAILY; TO THE AFFECTED AREA(S)
     Route: 065
     Dates: start: 20140916, end: 20180209
  18. ADCAL [Concomitant]
     Active Substance: CALCIUM CARBONATE
     Dosage: 2 DOSAGE FORMS DAILY;
     Route: 065
     Dates: start: 20120822, end: 20180209
  19. DONEPEZIL HYDROCHLORIDE. [Concomitant]
     Active Substance: DONEPEZIL HYDROCHLORIDE
     Dosage: AT NIGHT
     Route: 065
     Dates: start: 20130103, end: 20180209
  20. ATORVASTATIN [Concomitant]
     Active Substance: ATORVASTATIN
     Dosage: 1 DOSAGE FORMS DAILY;
     Route: 065
     Dates: start: 20150914, end: 20180209
  21. XARELTO [Concomitant]
     Active Substance: RIVAROXABAN
     Dosage: EVERY DAY UNTIL 1/3/16
     Route: 065
     Dates: start: 20150825, end: 20180209

REACTIONS (1)
  - Skin reaction [Recovered/Resolved]

NARRATIVE: CASE EVENT DATE: 20180219
